FAERS Safety Report 17920933 (Version 8)
Quarter: 2023Q2

REPORT INFORMATION
  Report Type: Report from Study
  Country: US (occurrence: US)
  Receive Date: 20200622
  Receipt Date: 20230515
  Transmission Date: 20230721
  Serious: Yes (Other)
  Sender: FDA-Public Use
  Company Number: US-ACADIA PHARMACEUTICALS INC.-ACA-2020-PIM-001752

PATIENT
  Sex: Female

DRUGS (29)
  1. NUPLAZID [Suspect]
     Active Substance: PIMAVANSERIN TARTRATE
     Indication: Parkinson^s disease psychosis
     Dosage: 34 MILLIGRAM, QD
     Route: 048
     Dates: start: 202004
  2. NUPLAZID [Suspect]
     Active Substance: PIMAVANSERIN TARTRATE
     Indication: Hallucination
     Dosage: 34 MILLIGRAM, QD
     Route: 048
  3. NUPLAZID [Suspect]
     Active Substance: PIMAVANSERIN TARTRATE
     Indication: Delusion
  4. REMERON [Suspect]
     Active Substance: MIRTAZAPINE
  5. DUOPA [Concomitant]
     Active Substance: CARBIDOPA\LEVODOPA
  6. AMOXICILLIN [Concomitant]
     Active Substance: AMOXICILLIN
  7. ARIPIPRAZOLE [Concomitant]
     Active Substance: ARIPIPRAZOLE
  8. ASPIRIN [Concomitant]
     Active Substance: ASPIRIN
  9. CARBIDOPA\LEVODOPA [Concomitant]
     Active Substance: CARBIDOPA\LEVODOPA
  10. DOFETILIDE [Concomitant]
     Active Substance: DOFETILIDE
  11. ELIQUIS [Concomitant]
     Active Substance: APIXABAN
  12. ESTRADIOL [Concomitant]
     Active Substance: ESTRADIOL
  13. GABAPENTIN [Concomitant]
     Active Substance: GABAPENTIN
  14. METOPROLOL SUCCINATE [Concomitant]
     Active Substance: METOPROLOL SUCCINATE
  15. METOPROLOL TARTRATE [Concomitant]
     Active Substance: METOPROLOL TARTRATE
  16. MIRALAX [Concomitant]
     Active Substance: POLYETHYLENE GLYCOL 3350
  17. MIRTAZAPINE [Concomitant]
     Active Substance: MIRTAZAPINE
  18. VITAMINS NOS [Concomitant]
     Active Substance: VITAMINS
  19. OXYCODONE [Concomitant]
     Active Substance: OXYCODONE
  20. RIVASTIGMINE [Concomitant]
     Active Substance: RIVASTIGMINE
  21. RYTARY [Concomitant]
     Active Substance: CARBIDOPA\LEVODOPA
  22. TIKOSYN [Concomitant]
     Active Substance: DOFETILIDE
  23. VITAMIN D3 [Concomitant]
     Active Substance: CHOLECALCIFEROL
  24. XADAGO [Concomitant]
     Active Substance: SAFINAMIDE MESYLATE
  25. PROLIA [Concomitant]
     Active Substance: DENOSUMAB
  26. PREDNISONE [Concomitant]
     Active Substance: PREDNISONE
     Indication: Bronchitis
  27. PREDNISONE [Concomitant]
     Active Substance: PREDNISONE
     Indication: Productive cough
  28. METOPROLOL [Concomitant]
     Active Substance: METOPROLOL
  29. CARBIDOPA [Concomitant]
     Active Substance: CARBIDOPA

REACTIONS (10)
  - Electrocardiogram QT prolonged [Unknown]
  - Bronchitis [Not Recovered/Not Resolved]
  - Productive cough [Not Recovered/Not Resolved]
  - Dyspepsia [Not Recovered/Not Resolved]
  - Dyspepsia [Unknown]
  - Gastrooesophageal reflux disease [Unknown]
  - Stoma site hypergranulation [Unknown]
  - COVID-19 [Unknown]
  - Surgery [Unknown]
  - Complication associated with device [Unknown]

NARRATIVE: CASE EVENT DATE: 20200101
